FAERS Safety Report 8485360-7 (Version None)
Quarter: 2012Q3

REPORT INFORMATION
  Report Type: 
  Country: None (occurrence: None)
  Receive Date: 20120703
  Receipt Date: 20120626
  Transmission Date: 20120928
  Serious: Yes (Hospitalization)
  Sender: FDA-Public Use
  Company Number: JP-JNJFOC-20120512665

PATIENT
  Sex: Female
  Weight: 46 kg

DRUGS (18)
  1. UNKNOWN MEDICATION [Concomitant]
     Route: 048
     Dates: start: 20120327, end: 20120327
  2. GALANTAMINE HYDROBROMIDE [Suspect]
     Route: 048
     Dates: start: 20120423, end: 20120502
  3. HOKUNALIN TAPE [Concomitant]
     Route: 062
     Dates: start: 20120427, end: 20120427
  4. GALANTAMINE HYDROBROMIDE [Suspect]
     Route: 048
     Dates: start: 20120302, end: 20120506
  5. COLONEL [Concomitant]
     Indication: CONSTIPATION
     Route: 048
     Dates: end: 20120413
  6. UNKNOWN MEDICATION [Concomitant]
     Indication: PAIN IN EXTREMITY
     Route: 048
     Dates: start: 20120430, end: 20120501
  7. GALANTAMINE HYDROBROMIDE [Suspect]
     Route: 048
     Dates: start: 20120506, end: 20120521
  8. LEVOTHYROXINE SODIUM [Concomitant]
     Indication: HYPOTHYROIDISM
     Route: 048
  9. ETHYL ICOSAPENTATE [Concomitant]
     Route: 048
  10. GALANTAMINE HYDROBROMIDE [Suspect]
     Indication: DEMENTIA ALZHEIMER'S TYPE
     Route: 048
     Dates: start: 20120327, end: 20120423
  11. MUCOSTA [Concomitant]
     Indication: PROPHYLAXIS
     Route: 048
  12. FOLIAMIN [Concomitant]
     Route: 048
  13. CALBLOCK [Concomitant]
     Indication: HYPERTENSION
     Route: 048
  14. VITAMIN B12 [Concomitant]
     Route: 048
  15. FERROUS CITRATE [Concomitant]
     Indication: IRON DEFICIENCY ANAEMIA
     Route: 048
  16. INDAPAMIDE [Concomitant]
     Indication: HYPERTENSION
     Route: 048
  17. MIYA BM [Concomitant]
     Indication: CONSTIPATION
     Route: 048
  18. COLONEL [Concomitant]
     Route: 048
     Dates: start: 20120414

REACTIONS (1)
  - DECREASED APPETITE [None]
